FAERS Safety Report 18617941 (Version 6)
Quarter: 2025Q1

REPORT INFORMATION
  Report Type: Report from Study
  Country: US (occurrence: US)
  Receive Date: 20201215
  Receipt Date: 20250116
  Transmission Date: 20250409
  Serious: Yes (Other)
  Sender: TAKEDA
  Company Number: US-SHIRE-US202014055

PATIENT
  Sex: Female

DRUGS (2)
  1. HUMAN IMMUNOGLOBULIN G\HYALURONIDASE RECOMBINANT HUMAN [Suspect]
     Active Substance: HUMAN IMMUNOGLOBULIN G\HYALURONIDASE (HUMAN RECOMBINANT)
     Indication: Primary immunodeficiency syndrome
  2. HUMAN IMMUNOGLOBULIN G\HYALURONIDASE RECOMBINANT HUMAN [Suspect]
     Active Substance: HUMAN IMMUNOGLOBULIN G\HYALURONIDASE (HUMAN RECOMBINANT)
     Indication: Hypogammaglobulinaemia

REACTIONS (20)
  - Brain injury [Unknown]
  - Staphylococcal infection [Unknown]
  - COVID-19 [Unknown]
  - Infusion related reaction [Unknown]
  - Impaired driving ability [Unknown]
  - Product distribution issue [Unknown]
  - Inappropriate schedule of product administration [Unknown]
  - Migraine [Unknown]
  - Fatigue [Unknown]
  - Coagulopathy [Unknown]
  - Skin discolouration [Unknown]
  - Limb mass [Unknown]
  - Carpal tunnel syndrome [Unknown]
  - Catheter site haemorrhage [Unknown]
  - Toothache [Unknown]
  - Ear infection [Unknown]
  - Viral infection [Unknown]
  - Wrong technique in device usage process [Unknown]
  - Anxiety [Unknown]
  - Pain in extremity [Unknown]
